FAERS Safety Report 18157752 (Version 1)
Quarter: 2020Q3

REPORT INFORMATION
  Report Type: Spontaneous
  Country: CN (occurrence: CN)
  Receive Date: 20200817
  Receipt Date: 20200817
  Transmission Date: 20201103
  Serious: Yes (Hospitalization)
  Sender: FDA-Public Use
  Company Number: CN-PFIZER INC-2020315401

PATIENT
  Age: 32 Year
  Sex: Male
  Weight: 80 kg

DRUGS (2)
  1. FLUCONAZOLE. [Suspect]
     Active Substance: FLUCONAZOLE
     Indication: FOLLICULITIS
     Dosage: 150 MG, 1X/DAY
     Route: 048
     Dates: start: 20200804, end: 20200810
  2. LUO HUA ZI ZHU [Suspect]
     Active Substance: HERBALS
     Indication: FOLLICULITIS
     Dosage: 2 DF, 3X/DAY
     Route: 048
     Dates: start: 20200804, end: 20200810

REACTIONS (11)
  - Alanine aminotransferase increased [Recovering/Resolving]
  - Drug eruption [Recovering/Resolving]
  - Blood uric acid increased [Recovering/Resolving]
  - Erythema [Recovering/Resolving]
  - Rash [Recovering/Resolving]
  - Gamma-glutamyltransferase increased [Recovering/Resolving]
  - Aspartate aminotransferase increased [Recovering/Resolving]
  - Complement factor C4 increased [Recovering/Resolving]
  - Off label use [Unknown]
  - Product use in unapproved indication [Unknown]
  - Papule [Recovering/Resolving]

NARRATIVE: CASE EVENT DATE: 20200804
